FAERS Safety Report 10878401 (Version 3)
Quarter: 2016Q1

REPORT INFORMATION
  Report Type: Spontaneous
  Country: US (occurrence: US)
  Receive Date: 20150302
  Receipt Date: 20160127
  Transmission Date: 20160525
  Serious: Yes (Hospitalization)
  Sender: FDA-Public Use
  Company Number: US-PFIZER INC-2015045792

PATIENT
  Age: 56 Year
  Sex: Female
  Weight: 57 kg

DRUGS (8)
  1. NEURONTIN [Suspect]
     Active Substance: GABAPENTIN
     Dosage: 1 NIGHT AND AM + PM 3 DAYS
  2. NEURONTIN [Suspect]
     Active Substance: GABAPENTIN
     Indication: PAIN
  3. NEURONTIN [Suspect]
     Active Substance: GABAPENTIN
     Indication: PAIN
     Dosage: 6400 MG, EVERY 4 HRS
  4. NEURONTIN [Suspect]
     Active Substance: GABAPENTIN
     Dosage: 2 - 800 MG, 4X/DAY
  5. NEURONTIN [Suspect]
     Active Substance: GABAPENTIN
     Dosage: 1 NIGHT AND AM 3 DAYS
  6. NEURONTIN [Suspect]
     Active Substance: GABAPENTIN
     Indication: SPINAL FRACTURE
     Dosage: 1600 MG, 2X/DAY (2 CAPSULE OF 800 MG, 2X/DAY)
  7. NEURONTIN [Suspect]
     Active Substance: GABAPENTIN
     Indication: SPINAL FRACTURE
     Dosage: 800 MG, 4X/DAY
     Dates: start: 1995
  8. NEURONTIN [Suspect]
     Active Substance: GABAPENTIN
     Dosage: 1 NIGHT FOR 3 DAYS

REACTIONS (7)
  - Intentional underdose [Unknown]
  - Pain [Not Recovered/Not Resolved]
  - Condition aggravated [Not Recovered/Not Resolved]
  - Product use issue [Unknown]
  - Migraine [Unknown]
  - Drug effect incomplete [Unknown]
  - Overdose [Not Recovered/Not Resolved]

NARRATIVE: CASE EVENT DATE: 1995
